FAERS Safety Report 4427451-3 (Version None)
Quarter: 2004Q3

REPORT INFORMATION
  Report Type: 
  Country: None (occurrence: None)
  Receive Date: 20040812
  Receipt Date: 20040803
  Transmission Date: 20050211
  Serious: Yes (Disabling)
  Sender: FDA-Public Use
  Company Number: 2004SE04418

PATIENT
  Age: 57 Year
  Sex: Male
  Weight: 86 kg

DRUGS (6)
  1. KENZEN [Suspect]
     Indication: ESSENTIAL HYPERTENSION
     Dosage: 16 MG QD PO
     Route: 048
     Dates: start: 20001222
  2. ZYLORIC [Suspect]
     Indication: HYPERURICAEMIA
     Dosage: 100 MG QD PO
     Route: 048
  3. PROGRAF [Suspect]
     Indication: HEART TRANSPLANT
     Dosage: 3 MG BID PO
     Route: 048
  4. TAHOR [Suspect]
     Indication: HYPERLIPIDAEMIA
     Dosage: 20 MG QD PO
     Route: 048
  5. CELLCEPT [Suspect]
     Indication: HEART TRANSPLANT
     Dosage: 1000 MG BID PO
     Route: 048
  6. ACTONEL [Suspect]
     Indication: OSTEOPOROSIS
     Dosage: 5 MG QD PO
     Route: 048

REACTIONS (1)
  - TENDON RUPTURE [None]
